FAERS Safety Report 5267442-6 (Version None)
Quarter: 2007Q1

REPORT INFORMATION
  Report Type: 
  Country: None (occurrence: None)
  Receive Date: 20070312
  Receipt Date: 20070228
  Transmission Date: 20070707
  Serious: Yes (Other)
  Sender: FDA-Public Use
  Company Number: 011434

PATIENT
  Age: 14 Year
  Sex: Female

DRUGS (4)
  1. CLARAVIS [Suspect]
     Indication: ACNE
     Dosage: 40 MG, QD; ORAL, 80 MG, QOD; ORAL, 40 MG;QOD;ORAL
     Route: 048
     Dates: start: 20061227, end: 20070129
  2. CLARAVIS [Suspect]
     Indication: ACNE
     Dosage: 40 MG, QD; ORAL, 80 MG, QOD; ORAL, 40 MG;QOD;ORAL
     Route: 048
     Dates: start: 20070130, end: 20070212
  3. CLARAVIS [Suspect]
     Indication: ACNE
     Dosage: 40 MG, QD; ORAL, 80 MG, QOD; ORAL, 40 MG;QOD;ORAL
     Route: 048
     Dates: start: 20070130, end: 20070212
  4. SEPTRA (SULFAMETHOXAZOLE, TRIMETOPRIM) [Concomitant]

REACTIONS (3)
  - DEPRESSION [None]
  - LIP DRY [None]
  - SUICIDAL IDEATION [None]
